FAERS Safety Report 10375729 (Version 1)
Quarter: 2014Q3

REPORT INFORMATION
  Report Type: Spontaneous
  Country: DE (occurrence: None)
  Receive Date: 20140730
  Receipt Date: 20140730
  Transmission Date: 20150326
  Serious: Yes (Other)
  Sender: FDA-Public Use
  Company Number: GAM-207-14-DE

PATIENT
  Age: 75 Year
  Sex: Male

DRUGS (8)
  1. PREGABALIN. [Concomitant]
     Active Substance: PREGABALIN
  2. TAMSULOSIN [Concomitant]
     Active Substance: TAMSULOSIN
  3. METOPROLOL [Concomitant]
     Active Substance: METOPROLOL
  4. OXYCODONE HYDROCHLORIDE. [Concomitant]
     Active Substance: OXYCODONE HYDROCHLORIDE
  5. PRIVIGEN [Suspect]
     Active Substance: HUMAN IMMUNOGLOBULIN G
     Indication: IMMUNOGLOBULIN THERAPY
     Dosage: 10 G (65X 1/ TOTAL) INTRAVENOUS (NOT OTHERWISE SPECIFIED
     Route: 042
     Dates: start: 20140528, end: 20140528
  6. OCTAGAM IMMUNE GLOBULIN (HUMAN) [Suspect]
     Active Substance: HUMAN IMMUNOGLOBULIN G
     Indication: IMMUNOGLOBULIN THERAPY
     Dosage: 10 G (SX 1/ TOTAL)  INTRAVENOUS (NOT OTHERWISE SPECIFIED)
     Route: 042
     Dates: start: 20140528, end: 20140528
  7. ACETYLSALICYLIC ACID [Concomitant]
     Active Substance: ASPIRIN
  8. NALOXONE HYDROCHLORIDE DIHYDRATE [Concomitant]

REACTIONS (4)
  - Angina pectoris [None]
  - Headache [None]
  - Haemolysis [None]
  - Malaise [None]

NARRATIVE: CASE EVENT DATE: 20140601
